FAERS Safety Report 16806807 (Version 1)
Quarter: 2019Q3

REPORT INFORMATION
  Report Type: Spontaneous
  Country: JP (occurrence: JP)
  Receive Date: 20190913
  Receipt Date: 20190913
  Transmission Date: 20191005
  Serious: Yes (Hospitalization, Other)
  Sender: FDA-Public Use
  Company Number: JP-009507513-1909JPN004633

PATIENT
  Age: 64 Year
  Sex: Male
  Weight: 47.5 kg

DRUGS (10)
  1. AZOSEMIDE [Concomitant]
     Active Substance: AZOSEMIDE
     Dosage: UNK
  2. GLYCORAN [Concomitant]
     Active Substance: GLYCERIN
     Dosage: UNK
  3. MUCOSOLVAN [Concomitant]
     Active Substance: AMBROXOL HYDROCHLORIDE
     Dosage: UNK
  4. CARVEDILOL. [Concomitant]
     Active Substance: CARVEDILOL
     Dosage: UNK
  5. GLACTIV [Suspect]
     Active Substance: SITAGLIPTIN
     Indication: TYPE 2 DIABETES MELLITUS
     Dosage: UNK
     Route: 048
  6. THYRADIN-S [Concomitant]
     Active Substance: LEVOTHYROXINE
     Dosage: UNK
  7. OPDIVO [Suspect]
     Active Substance: NIVOLUMAB
     Indication: METASTATIC RENAL CELL CARCINOMA
     Dosage: 240 MILLIGRAM
     Route: 041
     Dates: start: 20190523
  8. AMARYL [Concomitant]
     Active Substance: GLIMEPIRIDE
     Dosage: UNK
  9. FOIPAN [Suspect]
     Active Substance: CAMOSTAT MESYLATE
     Indication: PANCREATITIS CHRONIC
     Dosage: UNK
     Route: 048
  10. XYZAL [Concomitant]
     Active Substance: LEVOCETIRIZINE DIHYDROCHLORIDE
     Dosage: UNK

REACTIONS (1)
  - Type 1 diabetes mellitus [Not Recovered/Not Resolved]

NARRATIVE: CASE EVENT DATE: 20190620
